FAERS Safety Report 17521646 (Version 2)
Quarter: 2020Q1

REPORT INFORMATION
  Report Type: Report from Study
  Country: DE (occurrence: DE)
  Receive Date: 20200310
  Receipt Date: 20200316
  Transmission Date: 20200409
  Serious: Yes (Hospitalization)
  Sender: FDA-Public Use
  Company Number: DE-JNJFOC-20200239351

PATIENT
  Age: 37 Year
  Sex: Female
  Weight: 104 kg

DRUGS (8)
  1. LISINOPRIL. [Concomitant]
     Active Substance: LISINOPRIL
  2. FOSTER [Concomitant]
     Active Substance: BECLOMETHASONE\FORMOTEROL
     Dosage: DOSE 100/6 MICROGRAMS
  3. CYMBALTA [Concomitant]
     Active Substance: DULOXETINE HYDROCHLORIDE
  4. NOVORAPID [Concomitant]
     Active Substance: INSULIN ASPART
     Dosage: DOSE 100 IE/ML
  5. PANTOZOL [Concomitant]
     Active Substance: PANTOPRAZOLE SODIUM
  6. TOUJEO [Concomitant]
     Active Substance: INSULIN GLARGINE
     Dosage: DOSE 300 IE/ML
  7. ESKETAMINE [Suspect]
     Active Substance: ESKETAMINE
     Indication: DEPRESSION
     Dates: start: 20170710
  8. TRAZODONE [Concomitant]
     Active Substance: TRAZODONE HYDROCHLORIDE

REACTIONS (1)
  - Stent removal [Recovered/Resolved]

NARRATIVE: CASE EVENT DATE: 20200226
